FAERS Safety Report 25636714 (Version 1)
Quarter: 2025Q3

REPORT INFORMATION
  Report Type: Spontaneous
  Country: US (occurrence: US)
  Receive Date: 20250804
  Receipt Date: 20250804
  Transmission Date: 20251021
  Serious: No
  Sender: ELI LILLY AND COMPANY
  Company Number: US-ELI_LILLY_AND_COMPANY-US202508001394

PATIENT
  Sex: Female

DRUGS (6)
  1. CYMBALTA [Suspect]
     Active Substance: DULOXETINE HYDROCHLORIDE
     Indication: Depression
     Route: 048
  2. CYMBALTA [Suspect]
     Active Substance: DULOXETINE HYDROCHLORIDE
     Indication: Fibromyalgia
  3. CYMBALTA [Suspect]
     Active Substance: DULOXETINE HYDROCHLORIDE
     Indication: Neuralgia
  4. DULOXETINE [Suspect]
     Active Substance: DULOXETINE
     Indication: Product used for unknown indication
     Route: 065
  5. REXULTI [Concomitant]
     Active Substance: BREXPIPRAZOLE
     Indication: Cerebral disorder
     Route: 065
  6. LAMOTRIGINE [Concomitant]
     Active Substance: LAMOTRIGINE
     Indication: Cerebral disorder
     Route: 065

REACTIONS (7)
  - Pain [Not Recovered/Not Resolved]
  - Depression [Unknown]
  - Fibromyalgia [Not Recovered/Not Resolved]
  - Burning sensation [Not Recovered/Not Resolved]
  - Hypokinesia [Not Recovered/Not Resolved]
  - Tremor [Not Recovered/Not Resolved]
  - Drug hypersensitivity [Unknown]
